FAERS Safety Report 8401573 (Version 2)
Quarter: 2014Q4

REPORT INFORMATION
  Report Type: Report from Study
  Country: IT (occurrence: IT)
  Receive Date: 20120210
  Receipt Date: 20141224
  Transmission Date: 20150529
  Serious: Yes (Death, Other)
  Sender: FDA-Public Use
  Company Number: IT-ROCHE-795851

PATIENT

DRUGS (7)
  1. CYCLOPHOSPHAMIDE. [Suspect]
     Active Substance: CYCLOPHOSPHAMIDE
     Indication: MANTLE CELL LYMPHOMA
     Dosage: DAYS 1-3
     Route: 040
  2. DOXORUBICIN [Suspect]
     Active Substance: DOXORUBICIN
     Indication: MANTLE CELL LYMPHOMA
     Dosage: DAYS 4-5
     Route: 065
  3. CYTARABINE. [Suspect]
     Active Substance: CYTARABINE
     Indication: MANTLE CELL LYMPHOMA
     Dosage: DAYS 2-3
     Route: 065
  4. METHOTREXATE [Suspect]
     Active Substance: METHOTREXATE
     Indication: MANTLE CELL LYMPHOMA
     Dosage: DAYS 4-5
     Route: 065
  5. DEXAMETHASONE. [Suspect]
     Active Substance: DEXAMETHASONE
     Indication: MANTLE CELL LYMPHOMA
     Dosage: DAYS 1-4 AND 11-14
     Route: 065
  6. RITUXIMAB [Suspect]
     Active Substance: RITUXIMAB
     Indication: MANTLE CELL LYMPHOMA
     Route: 042
  7. VINCRISTINE [Suspect]
     Active Substance: VINCRISTINE
     Indication: MANTLE CELL LYMPHOMA
     Dosage: ON DAYS 4 AND 11 AT A MAXIMUM DOSE OF 2 MG.
     Route: 065

REACTIONS (16)
  - Cardiac failure [Fatal]
  - Pancreatitis acute [Unknown]
  - Bronchopulmonary aspergillosis [Fatal]
  - Neutropenia [Unknown]
  - Anaemia [Unknown]
  - Ileus paralytic [Unknown]
  - Neuropathy peripheral [Unknown]
  - Infusion related reaction [Unknown]
  - Astringent therapy [Unknown]
  - Infection [Unknown]
  - Atrial fibrillation [Unknown]
  - Sepsis [Fatal]
  - Embolism [Unknown]
  - Thrombocytopenia [Unknown]
  - Sinus bradycardia [Unknown]
  - Epidermolysis [Unknown]
